FAERS Safety Report 8263406-9 (Version None)
Quarter: 2012Q2

REPORT INFORMATION
  Report Type: 
  Country: None (occurrence: None)
  Receive Date: 20120405
  Receipt Date: 20120403
  Transmission Date: 20120825
  Serious: Yes (Death, Life-Threatening, Hospitalization, Other)
  Sender: FDA-Public Use
  Company Number: AU-B.I. PHARMACEUTICALS,INC./RIDGEFIELD-2012-AU-00624AU

PATIENT
  Sex: Male
  Weight: 78 kg

DRUGS (10)
  1. SYMBICORT [Concomitant]
     Dosage: 2 PUFFS TWICE DAILY
     Route: 055
  2. ATORVASTATIN [Concomitant]
     Dosage: 80 MG
     Route: 048
  3. RAMIPRIL [Concomitant]
     Dosage: 2.5 MG
     Route: 048
  4. DIGOXIN [Concomitant]
     Dosage: 125 MCG
     Route: 048
  5. VENTOLIN [Concomitant]
     Dosage: 1 PUFFS THREE TIMES DAILY
     Route: 055
  6. PRADAXA [Suspect]
     Indication: ATRIAL FIBRILLATION
     Dosage: 220 MG
     Route: 048
     Dates: start: 20110815
  7. OMEPRAZOLE [Concomitant]
     Dosage: 20 MG
     Route: 048
  8. ACETAMINOPHEN [Concomitant]
     Dosage: 3990 MG
     Route: 048
  9. EZETIMIBE [Concomitant]
     Dosage: 10 MG
     Route: 048
  10. GLICLAZIDE [Concomitant]
     Dosage: 90 MG
     Route: 048

REACTIONS (5)
  - SEPSIS [None]
  - MALAISE [None]
  - PYREXIA [None]
  - MYOCARDIAL INFARCTION [None]
  - WOUND INFECTION [None]
